FAERS Safety Report 22851097 (Version 2)
Quarter: 2024Q1

REPORT INFORMATION
  Report Type: Spontaneous
  Country: CA (occurrence: CA)
  Receive Date: 20230822
  Receipt Date: 20240104
  Transmission Date: 20240409
  Serious: Yes (Hospitalization)
  Sender: FDA-Public Use
  Company Number: CA-OTSUKA-2023_021602

PATIENT
  Age: 43 Year
  Sex: Male

DRUGS (10)
  1. VORTIOXETINE [Suspect]
     Active Substance: VORTIOXETINE
     Indication: Bipolar disorder
     Dosage: UNK
     Route: 065
  2. BREXPIPRAZOLE [Suspect]
     Active Substance: BREXPIPRAZOLE
     Indication: Bipolar disorder
     Dosage: UNK
     Route: 065
  3. BENZTROPINE [Suspect]
     Active Substance: BENZTROPINE
     Indication: Bipolar disorder
     Dosage: UNK
     Route: 065
  4. CLONAZEPAM [Suspect]
     Active Substance: CLONAZEPAM
     Indication: Bipolar disorder
     Dosage: UNK
     Route: 065
  5. QUETIAPINE [Suspect]
     Active Substance: QUETIAPINE
     Indication: Bipolar disorder
     Dosage: UNK
     Route: 065
  6. ZOPICLONE [Suspect]
     Active Substance: ZOPICLONE
     Indication: Bipolar disorder
     Dosage: UNK
     Route: 065
  7. LEVOMILNACIPRAN [Suspect]
     Active Substance: LEVOMILNACIPRAN
     Indication: Bipolar disorder
     Dosage: UNK
     Route: 065
  8. KETAMINE [Suspect]
     Active Substance: KETAMINE
     Indication: Bipolar disorder
     Dosage: 0.5 MILLIGRAM/KILOGRAM
     Route: 065
  9. KETAMINE [Suspect]
     Active Substance: KETAMINE
     Dosage: 0.5 MILLIGRAM/KILOGRAM
     Route: 065
  10. KETAMINE [Suspect]
     Active Substance: KETAMINE
     Dosage: UNK
     Route: 041
     Dates: start: 202001

REACTIONS (2)
  - Drug ineffective [Unknown]
  - Off label use [Unknown]
